FAERS Safety Report 17081032 (Version 1)
Quarter: 2019Q4

REPORT INFORMATION
  Report Type: Spontaneous
  Country: US (occurrence: US)
  Receive Date: 20191127
  Receipt Date: 20191127
  Transmission Date: 20200122
  Serious: Yes (Hospitalization)
  Sender: FDA-Public Use
  Company Number: US-VERTEX PHARMACEUTICALS-2019-011726

PATIENT
  Sex: Male

DRUGS (17)
  1. BUDESONIDE. [Concomitant]
     Active Substance: BUDESONIDE
  2. HUMALOG [Concomitant]
     Active Substance: INSULIN LISPRO
  3. DULERA [Concomitant]
     Active Substance: FORMOTEROL FUMARATE DIHYDRATE\MOMETASONE FUROATE
  4. SYMDEKO [Suspect]
     Active Substance: IVACAFTOR\TEZACAFTOR
     Indication: CYSTIC FIBROSIS
     Dosage: 100MG TEZACAFTOR/150MG IVACAFTOR AM; 150MG IVACAFTOR PM WITH FAT CONTAINING FOOD
     Route: 048
     Dates: start: 201811
  5. OSCAL [CALCITRIOL] [Concomitant]
  6. FLONASE [Concomitant]
     Active Substance: FLUTICASONE PROPIONATE
  7. COLISTIMETHATE [COLISTIMETHATE SODIUM] [Concomitant]
     Active Substance: COLISTIMETHATE SODIUM
  8. PULMOZYME [Concomitant]
     Active Substance: DORNASE ALFA
  9. SODIUM CHLORIDE. [Concomitant]
     Active Substance: SODIUM CHLORIDE
  10. CELEX [CEFALEXIN MONOHYDRATE] [Concomitant]
  11. CREON [Concomitant]
     Active Substance: PANCRELIPASE AMYLASE\PANCRELIPASE LIPASE\PANCRELIPASE PROTEASE
  12. PANTOPRAZOLE [Concomitant]
     Active Substance: PANTOPRAZOLE
  13. VITAMIN D3 [Concomitant]
     Active Substance: CHOLECALCIFEROL
  14. ALBUTEROL [SALBUTAMOL SULFATE] [Concomitant]
     Active Substance: ALBUTEROL SULFATE
  15. MIRALAX [Concomitant]
     Active Substance: POLYETHYLENE GLYCOL 3350
  16. TOBRAMYCIN. [Concomitant]
     Active Substance: TOBRAMYCIN
  17. CIPROFLOXACIN. [Concomitant]
     Active Substance: CIPROFLOXACIN

REACTIONS (1)
  - Hospitalisation [Unknown]

NARRATIVE: CASE EVENT DATE: 2019
